FAERS Safety Report 19104911 (Version 2)
Quarter: 2021Q2

REPORT INFORMATION
  Report Type: Spontaneous
  Country: JP (occurrence: JP)
  Receive Date: 20210407
  Receipt Date: 20210524
  Transmission Date: 20210717
  Serious: Yes (Hospitalization, Other)
  Sender: FDA-Public Use
  Company Number: JP-PFIZER INC-2021107451

PATIENT
  Age: 45 Year
  Sex: Male
  Weight: 77.8 kg

DRUGS (2)
  1. MIYA?BM [Concomitant]
     Active Substance: CLOSTRIDIUM BUTYRICUM SPORES STRAIN M-55
     Dosage: UNK
  2. BOSULIF [Suspect]
     Active Substance: BOSUTINIB MONOHYDRATE
     Indication: CHRONIC MYELOID LEUKAEMIA
     Dosage: 300 MG, 1X/DAY
     Route: 048
     Dates: start: 20210121, end: 20210201

REACTIONS (3)
  - Pancreatitis [Recovered/Resolved]
  - Diarrhoea [Unknown]
  - Hepatic function abnormal [Recovered/Resolved]

NARRATIVE: CASE EVENT DATE: 20210130
